FAERS Safety Report 10524760 (Version 2)
Quarter: 2014Q4

REPORT INFORMATION
  Report Type: Spontaneous
  Country: US (occurrence: US)
  Receive Date: 20141017
  Receipt Date: 20141223
  Transmission Date: 20150528
  Serious: No
  Sender: FDA-Public Use
  Company Number: US-PFIZER INC-2014284276

PATIENT
  Sex: Male

DRUGS (5)
  1. CODEINE [Suspect]
     Active Substance: CODEINE
     Dosage: 1 DF, UNK (1ST DOSE)
  2. VERSED [Suspect]
     Active Substance: MIDAZOLAM HYDROCHLORIDE
     Dosage: 3 DF, UNK (3 DOSES)
  3. AMLODIPINE BESILATE [Suspect]
     Active Substance: AMLODIPINE BESYLATE
     Indication: PULMONARY HYPERTENSION
     Dosage: 5 MG, 1X/DAY (5 MG Q DAY)
  4. PROCARDIA [Suspect]
     Active Substance: NIFEDIPINE
     Dosage: 50 MG, UNK
     Dates: start: 198608
  5. PERCOCET [Suspect]
     Active Substance: ACETAMINOPHEN\OXYCODONE HYDROCHLORIDE
     Dosage: UNK

REACTIONS (1)
  - Drug hypersensitivity [Unknown]
